FAERS Safety Report 17027770 (Version 1)
Quarter: 2019Q4

REPORT INFORMATION
  Report Type: Spontaneous
  Country: US (occurrence: US)
  Receive Date: 20191010
  Receipt Date: 20191010
  Transmission Date: 20200122
  Serious: No
  Sender: FDA-Public Use
  Company Number: None

PATIENT
  Age: 73 Year
  Sex: Male

DRUGS (1)
  1. INLYTA [Suspect]
     Active Substance: AXITINIB
     Indication: DIVERTICULITIS
     Route: 048
     Dates: start: 20190918

REACTIONS (8)
  - Nausea [None]
  - Myalgia [None]
  - Back pain [None]
  - Pollakiuria [None]
  - Abdominal discomfort [None]
  - Pain in extremity [None]
  - Fatigue [None]
  - Arthralgia [None]

NARRATIVE: CASE EVENT DATE: 20190919
